FAERS Safety Report 22656350 (Version 1)
Quarter: 2023Q2

REPORT INFORMATION
  Report Type: Spontaneous
  Country: CN (occurrence: HK)
  Receive Date: 20230629
  Receipt Date: 20230629
  Transmission Date: 20230722
  Serious: Yes (Hospitalization)
  Sender: FDA-Public Use
  Company Number: CN-PRINSTON PHARMACEUTICAL INC.-2023PRN00306

PATIENT
  Age: 59 Year
  Sex: Male

DRUGS (5)
  1. METFORMIN HYDROCHLORIDE [Suspect]
     Active Substance: METFORMIN HYDROCHLORIDE
     Dosage: 500 MG, 2X/DAY
  2. AMLODIPINE [Concomitant]
     Active Substance: AMLODIPINE BESYLATE
  3. LOSARTAN [Concomitant]
     Active Substance: LOSARTAN
  4. PRAZOSIN [Concomitant]
     Active Substance: PRAZOSIN
  5. ATORVASTATIN [Concomitant]
     Active Substance: ATORVASTATIN

REACTIONS (3)
  - Lactic acidosis [Recovered/Resolved]
  - Cardiogenic shock [Recovered/Resolved]
  - Vasoplegia syndrome [Recovered/Resolved]
